FAERS Safety Report 24595393 (Version 1)
Quarter: 2024Q4

REPORT INFORMATION
  Report Type: Report from Study
  Country: JP (occurrence: JP)
  Receive Date: 20241109
  Receipt Date: 20241109
  Transmission Date: 20250114
  Serious: Yes (Death)
  Sender: ABBVIE
  Company Number: JP-ABBVIE-5995748

PATIENT
  Age: 82 Year
  Sex: Female
  Weight: 56 kg

DRUGS (1)
  1. RINVOQ [Suspect]
     Active Substance: UPADACITINIB
     Indication: Rheumatoid arthritis
     Dosage: 7.5 MILLIGRAM
     Route: 048
     Dates: start: 20210507, end: 20231208

REACTIONS (1)
  - Oropharyngeal cancer [Fatal]

NARRATIVE: CASE EVENT DATE: 20231208
